FAERS Safety Report 5103803-3 (Version None)
Quarter: 2006Q3

REPORT INFORMATION
  Report Type: 
  Country: None (occurrence: None)
  Receive Date: 20060913
  Receipt Date: 20060906
  Transmission Date: 20061208
  Serious: Yes (Hospitalization)
  Sender: FDA-Public Use
  Company Number: PHEH2006US11522

PATIENT
  Age: 14 Year
  Sex: Male
  Weight: 61.224 kg

DRUGS (1)
  1. FOCALIN XR [Suspect]
     Dosage: 20 MG, BID
     Route: 048
     Dates: start: 20060827, end: 20060905

REACTIONS (2)
  - RASH [None]
  - STEVENS-JOHNSON SYNDROME [None]
